FAERS Safety Report 16172879 (Version 1)
Quarter: 2019Q2

REPORT INFORMATION
  Report Type: Spontaneous
  Country: DE (occurrence: DE)
  Receive Date: 20190409
  Receipt Date: 20190409
  Transmission Date: 20190711
  Serious: Yes (Disabling, Other)
  Sender: FDA-Public Use
  Company Number: DE-AUROBINDO-AUR-APL-2019-018194

PATIENT

DRUGS (4)
  1. VALSARTAN DURA [Suspect]
     Active Substance: VALSARTAN
     Indication: HYPERTENSION
     Dosage: 1 DF, QD
     Route: 065
     Dates: start: 20180718
  2. VALSARTAN HEXAL [Suspect]
     Active Substance: VALSARTAN
     Indication: HYPERTENSION
     Dosage: 1 DF, QD
     Route: 065
     Dates: start: 20130416
  3. VALSARTAN 1A PHARMA [Suspect]
     Active Substance: VALSARTAN
     Indication: HYPERTENSION
     Dosage: 1 DF, QD
     Route: 065
     Dates: start: 201412
  4. VALSARTAN 160 MG FILM-COATED TABLET [Suspect]
     Active Substance: VALSARTAN
     Indication: HYPERTENSION
     Dosage: 1 DF, QD
     Route: 065
     Dates: start: 20180102

REACTIONS (12)
  - Gait disturbance [Unknown]
  - Lyme disease [Unknown]
  - Arthropathy [Unknown]
  - Hypertension [Unknown]
  - Arrhythmia [Unknown]
  - Spinal cord disorder [Unknown]
  - Thyroid disorder [Unknown]
  - Borrelia infection [Unknown]
  - Gout [Unknown]
  - Musculoskeletal discomfort [Unknown]
  - Lymphoedema [Unknown]
  - Psoriatic arthropathy [Unknown]
